FAERS Safety Report 4710895-X (Version None)
Quarter: 2005Q3

REPORT INFORMATION
  Report Type: 
  Country: None (occurrence: None)
  Receive Date: 20050711
  Receipt Date: 20050706
  Transmission Date: 20060218
  Serious: Yes (Other)
  Sender: FDA-Public Use
  Company Number: PHEH2005US07458

PATIENT
  Sex: 0

DRUGS (2)
  1. TRILEPTAL [Suspect]
     Dosage: UNK, UNK
  2. SEROQUEL [Suspect]

REACTIONS (1)
  - METABOLIC ACIDOSIS [None]
